FAERS Safety Report 23525049 (Version 1)
Quarter: 2024Q1

REPORT INFORMATION
  Report Type: Report from Study
  Country: US (occurrence: US)
  Receive Date: 20240215
  Receipt Date: 20240215
  Transmission Date: 20240410
  Serious: Yes (Other)
  Sender: FDA-Public Use
  Company Number: US-ABBVIE-5640787

PATIENT
  Sex: Male

DRUGS (1)
  1. LUMIGAN [Suspect]
     Active Substance: BIMATOPROST
     Indication: Product used for unknown indication
     Dosage: 0.01%  EYE DROPS-INSTILL ONE DROP IN EACH EYE EVERY EVENING?FORM STRENGHTH-0.1MG/ML
     Route: 065

REACTIONS (1)
  - Cardiac failure [Unknown]
